FAERS Safety Report 21918929 (Version 1)
Quarter: 2023Q1

REPORT INFORMATION
  Report Type: Spontaneous
  Country: GB (occurrence: GB)
  Receive Date: 20230127
  Receipt Date: 20230127
  Transmission Date: 20230418
  Serious: Yes (Other)
  Sender: FDA-Public Use
  Company Number: GB-MHRA-EMIS-235-5ee49bac-b8ab-4387-99d8-b2167dbd8ba3

PATIENT
  Age: 82 Year
  Sex: Female
  Weight: 60.3 kg

DRUGS (4)
  1. ANASTROZOLE [Suspect]
     Active Substance: ANASTROZOLE
     Indication: Product used for unknown indication
     Dosage: 1 MILLIGRAM, QD
     Route: 065
     Dates: start: 20220227, end: 20221020
  2. BIVALENT SPIKEVAX [Concomitant]
     Indication: COVID-19 immunisation
     Dosage: 0.5 MILLILITER
     Route: 030
     Dates: start: 20220922, end: 20220922
  3. LERCANIDIPINE [Concomitant]
     Active Substance: LERCANIDIPINE
     Indication: Essential hypertension
     Dosage: 20 MILLIGRAM, 1 DOSE
     Route: 065
     Dates: start: 20221103
  4. INFLUENZA VIRUS VACCINE [Concomitant]
     Active Substance: INFLUENZA VIRUS VACCINE
     Indication: Influenza immunisation
     Dosage: UNK
     Route: 065
     Dates: start: 20221007, end: 20221007

REACTIONS (4)
  - Syncope [Recovered/Resolved]
  - Dizziness [Unknown]
  - Hypercalcaemia [Unknown]
  - Hyperparathyroidism primary [Unknown]

NARRATIVE: CASE EVENT DATE: 20220405
